FAERS Safety Report 19438282 (Version 1)
Quarter: 2021Q2

REPORT INFORMATION
  Report Type: Spontaneous
  Country: CA (occurrence: CA)
  Receive Date: 20210618
  Receipt Date: 20210618
  Transmission Date: 20210717
  Serious: Yes (Other)
  Sender: FDA-Public Use
  Company Number: CA-PFIZER INC-2021681869

PATIENT
  Age: 69 Year
  Sex: Female

DRUGS (12)
  1. SULFASALAZINE. [Suspect]
     Active Substance: SULFASALAZINE
  2. AZATHIOPRINE SODIUM. [Suspect]
     Active Substance: AZATHIOPRINE SODIUM
  3. PROGRAF [Suspect]
     Active Substance: TACROLIMUS
  4. PREDNISONE. [Concomitant]
     Active Substance: PREDNISONE
     Dosage: 7.5 MG
  5. CICLOSPORIN [Suspect]
     Active Substance: CYCLOSPORINE
  6. PLAQUENIL [Suspect]
     Active Substance: HYDROXYCHLOROQUINE SULFATE
     Dosage: 200 MG, 2X/DAY
  7. SORIATANE [Suspect]
     Active Substance: ACITRETIN
     Dosage: 25 MG, 3 EVERY 1 WEEK
  8. COSENTYX [Suspect]
     Active Substance: SECUKINUMAB
  9. OTEZLA [Suspect]
     Active Substance: APREMILAST
     Dosage: 30 MG, 2X/DAY
  10. TACROLIMUS. [Suspect]
     Active Substance: TACROLIMUS
     Dosage: UNK, 1X/DAY
  11. RINVOQ [Suspect]
     Active Substance: UPADACITINIB
     Route: 048
  12. METHOTREXATE SODIUM. [Suspect]
     Active Substance: METHOTREXATE SODIUM

REACTIONS (17)
  - Lichen planus [Unknown]
  - Therapeutic product effect incomplete [Unknown]
  - Tongue ulceration [Unknown]
  - Unevaluable event [Unknown]
  - Cataract [Unknown]
  - Arthralgia [Unknown]
  - Feeding disorder [Unknown]
  - Mouth ulceration [Unknown]
  - Eczema [Unknown]
  - Oesophageal stenosis [Unknown]
  - Oesophageal ulcer [Unknown]
  - Condition aggravated [Unknown]
  - Drug ineffective [Unknown]
  - Liver function test increased [Unknown]
  - Weight decreased [Unknown]
  - Oral lichen planus [Unknown]
  - Skin lesion [Unknown]
